FAERS Safety Report 11357630 (Version 1)
Quarter: 2015Q3

REPORT INFORMATION
  Report Type: Spontaneous
  Country: US (occurrence: US)
  Receive Date: 20150803
  Receipt Date: 20150803
  Transmission Date: 20151125
  Serious: No
  Sender: FDA-Public Use
  Company Number: US-ELI_LILLY_AND_COMPANY-US201407004381

PATIENT
  Age: 38 Year
  Sex: Male
  Weight: 118 kg

DRUGS (2)
  1. ZYPREXA [Suspect]
     Active Substance: OLANZAPINE
     Indication: SCHIZOPHRENIA
     Dosage: UNK, UNKNOWN
     Route: 065
  2. ZYPREXA INTRAMUSCULAR [Suspect]
     Active Substance: OLANZAPINE
     Indication: SCHIZOPHRENIA
     Dosage: UNK, UNKNOWN
     Route: 030

REACTIONS (2)
  - Malabsorption from injection site [Unknown]
  - Injection site fibrosis [Unknown]
